FAERS Safety Report 21888186 (Version 2)
Quarter: 2023Q1

REPORT INFORMATION
  Report Type: Spontaneous
  Country: JP (occurrence: JP)
  Receive Date: 20230120
  Receipt Date: 20230207
  Transmission Date: 20230417
  Serious: Yes (Hospitalization, Other)
  Sender: FDA-Public Use
  Company Number: JP-BRISTOL-MYERS SQUIBB COMPANY-2022-106541

PATIENT
  Sex: Female

DRUGS (2)
  1. YERVOY [Suspect]
     Active Substance: IPILIMUMAB
     Indication: Renal cell carcinoma
  2. OPDIVO [Suspect]
     Active Substance: NIVOLUMAB
     Indication: Renal cell carcinoma

REACTIONS (12)
  - Rash [Recovering/Resolving]
  - Metastases to bone [Unknown]
  - Metastases to lung [Unknown]
  - Lymphocyte count increased [Unknown]
  - White blood cell count increased [Unknown]
  - Malignant neoplasm progression [Unknown]
  - Anaemia [Unknown]
  - Pyrexia [Unknown]
  - Adrenal insufficiency [Unknown]
  - Pruritus [Unknown]
  - Thyroid disorder [Unknown]
  - Hypothalamo-pituitary disorder [Unknown]
